FAERS Safety Report 21704293 (Version 1)
Quarter: 2022Q4

REPORT INFORMATION
  Report Type: Spontaneous
  Country: FR (occurrence: FR)
  Receive Date: 20221209
  Receipt Date: 20221209
  Transmission Date: 20230113
  Serious: Yes (Hospitalization)
  Sender: FDA-Public Use
  Company Number: None

PATIENT
  Age: 82 Year
  Sex: Female

DRUGS (2)
  1. CLARITHROMYCIN [Interacting]
     Active Substance: CLARITHROMYCIN
     Indication: Infection
     Dosage: 1000 MG (500 MG 2/J)
     Route: 065
  2. FLUINDIONE [Interacting]
     Active Substance: FLUINDIONE
     Indication: Prophylaxis
     Dosage: 1000 MG (500MG 2/J)
     Route: 065

REACTIONS (2)
  - International normalised ratio decreased [Not Recovered/Not Resolved]
  - Retroperitoneal haematoma [Not Recovered/Not Resolved]

NARRATIVE: CASE EVENT DATE: 20221113
